FAERS Safety Report 20399395 (Version 2)
Quarter: 2022Q1

REPORT INFORMATION
  Report Type: Spontaneous
  Country: US (occurrence: US)
  Receive Date: 20220131
  Receipt Date: 20220201
  Transmission Date: 20220424
  Serious: No
  Sender: FDA-Public Use
  Company Number: US-ABBVIE-21K-163-4060778-00

PATIENT
  Age: 61 Year
  Sex: Female
  Weight: 52.664 kg

DRUGS (10)
  1. HUMIRA [Suspect]
     Active Substance: ADALIMUMAB
     Indication: Rheumatoid arthritis
     Route: 058
     Dates: start: 20210701
  2. LISINOPRIL [Concomitant]
     Active Substance: LISINOPRIL
     Indication: Hypertension
  3. METHOTREXATE [Concomitant]
     Active Substance: METHOTREXATE
     Indication: Arthritis
  4. PREMARIN [Concomitant]
     Active Substance: ESTROGENS, CONJUGATED
     Indication: Hormone therapy
  5. VITAMIN D [Concomitant]
     Active Substance: VITAMIN D NOS
     Indication: Supplementation therapy
  6. ACTONEL [Concomitant]
     Active Substance: RISEDRONATE SODIUM
     Indication: Bone disorder
  7. RISEDRONATE SODIUM [Concomitant]
     Active Substance: RISEDRONATE SODIUM
     Indication: Bone disorder
  8. METANX [Concomitant]
     Active Substance: LEVOMEFOLATE CALCIUM\METHYLCOBALAMIN\PYRIDOXAL PHOSPHATE ANHYDROUS
     Indication: Supplementation therapy
  9. MODERNA COVID-19 VACCINE [Concomitant]
     Active Substance: ELASOMERAN
     Indication: COVID-19 immunisation
     Dosage: MODERNA
     Route: 030
     Dates: start: 20210205, end: 20210205
  10. MODERNA COVID-19 VACCINE [Concomitant]
     Active Substance: ELASOMERAN
     Dosage: MODERNA
     Route: 030
     Dates: start: 20210305, end: 20210305

REACTIONS (7)
  - Injection site rash [Recovered/Resolved]
  - Injection site pruritus [Recovered/Resolved]
  - Injection site urticaria [Recovered/Resolved]
  - Injection site erythema [Recovered/Resolved]
  - Wrong technique in product usage process [Unknown]
  - Device issue [Not Recovered/Not Resolved]
  - Incorrect dose administered [Unknown]

NARRATIVE: CASE EVENT DATE: 20210812
